FAERS Safety Report 8006148-7 (Version None)
Quarter: 2011Q4

REPORT INFORMATION
  Report Type: 
  Country: None (occurrence: None)
  Receive Date: 20111226
  Receipt Date: 20111213
  Transmission Date: 20120403
  Serious: Yes (Other)
  Sender: FDA-Public Use
  Company Number: GB-ELI_LILLY_AND_COMPANY-GB201112004144

PATIENT
  Age: 45 Year
  Sex: Female
  Weight: 62 kg

DRUGS (7)
  1. AMITRIPTYLINE HCL [Concomitant]
     Dosage: UNK
     Dates: start: 20110812, end: 20110909
  2. OMEPRAZOLE [Concomitant]
     Dosage: UNK
     Dates: start: 20111130
  3. TRANEXAMIC ACID [Concomitant]
     Dosage: UNK
     Dates: start: 20111010, end: 20111107
  4. ZOPICLONE [Concomitant]
     Dosage: UNK
     Dates: start: 20111101, end: 20111115
  5. FLUOXETINE [Suspect]
     Dosage: UNK
     Dates: start: 20111115
  6. GABAPENTIN [Concomitant]
     Dosage: UNK
     Dates: start: 20110902
  7. LEVOTHYROXINE SODIUM [Concomitant]
     Dosage: UNK
     Dates: start: 20110812

REACTIONS (5)
  - MYDRIASIS [None]
  - DYSPNOEA [None]
  - VOMITING [None]
  - DIARRHOEA [None]
  - PALPITATIONS [None]
